FAERS Safety Report 10768898 (Version 7)
Quarter: 2015Q2

REPORT INFORMATION
  Report Type: Report from Study
  Country: US (occurrence: US)
  Receive Date: 20150206
  Receipt Date: 20150505
  Transmission Date: 20150821
  Serious: Yes (Hospitalization)
  Sender: FDA-Public Use
  Company Number: US-ROCHE-1530486

PATIENT
  Age: 59 Year
  Sex: Male
  Weight: 76.1 kg

DRUGS (62)
  1. DECADRON [Concomitant]
     Active Substance: DEXAMETHASONE
     Dosage: INDICATION: PREMEDICATION PRIOR TO OBINUTUZUMAB
     Route: 065
     Dates: start: 20150309, end: 20150309
  2. DECADRON [Concomitant]
     Active Substance: DEXAMETHASONE
     Route: 065
     Dates: start: 20150330, end: 20150330
  3. DECADRON [Concomitant]
     Active Substance: DEXAMETHASONE
     Route: 065
     Dates: start: 20150421, end: 20150421
  4. TYLENOL [Concomitant]
     Active Substance: ACETAMINOPHEN
     Route: 065
     Dates: start: 20150126, end: 20150126
  5. TYLENOL [Concomitant]
     Active Substance: ACETAMINOPHEN
     Route: 065
     Dates: start: 20150309, end: 20150309
  6. NEULASTA [Concomitant]
     Active Substance: PEGFILGRASTIM
     Indication: PROPHYLAXIS
     Route: 065
     Dates: start: 20150106, end: 20150106
  7. NEULASTA [Concomitant]
     Active Substance: PEGFILGRASTIM
     Dosage: INDICATION: PRIMARY PROPHYLAXIS FOR NEUTROPENIA.
     Route: 065
     Dates: start: 20150218, end: 20150218
  8. NEULASTA [Concomitant]
     Active Substance: PEGFILGRASTIM
     Route: 065
     Dates: start: 20150310, end: 20150310
  9. BENADRYL [Concomitant]
     Active Substance: DIPHENHYDRAMINE HYDROCHLORIDE
     Route: 065
     Dates: start: 20150126, end: 20150126
  10. VINCRISTINE [Suspect]
     Active Substance: VINCRISTINE
     Indication: NON-HODGKIN^S LYMPHOMA
     Dosage: DOSE OF LAST VINCRISTINE ADMINISTERED 2 (UNITS NOT REPORTED) ON 26/JAN/2015
     Route: 065
     Dates: start: 20150105, end: 20150126
  11. KYTRIL [Concomitant]
     Active Substance: GRANISETRON HYDROCHLORIDE
     Route: 065
     Dates: start: 20150217, end: 20150217
  12. NYQUIL COLD AND FLU NIGHTTIME RELIEF [Concomitant]
     Indication: NASAL CONGESTION
  13. ALLOPURINOL. [Concomitant]
     Active Substance: ALLOPURINOL
     Dosage: FOR TLS PROPHYLAXIS PER PROTOCOL
     Route: 065
     Dates: start: 20150104, end: 20150114
  14. SODIUM CHLORIDE. [Concomitant]
     Active Substance: SODIUM CHLORIDE
     Dosage: INDICATION: HYDRATION TO PREVENT TLS
     Route: 042
     Dates: start: 20150330, end: 20150330
  15. GDC-0199 (BCL-2 SELECTIVE INHIBITOR) [Suspect]
     Active Substance: VENETOCLAX
     Dosage: CYCLE 3/DAY 1
     Route: 048
     Dates: start: 20150217
  16. COMPAZINE [Concomitant]
     Active Substance: PROCHLORPERAZINE MALEATE
     Indication: NAUSEA
     Route: 065
     Dates: start: 20150105
  17. DECADRON [Concomitant]
     Active Substance: DEXAMETHASONE
     Dosage: SELECT IF ONGOING=NO
     Route: 065
     Dates: start: 20150113, end: 20150113
  18. TYLENOL [Concomitant]
     Active Substance: ACETAMINOPHEN
     Indication: PREMEDICATION
     Route: 065
     Dates: start: 20150105, end: 20150105
  19. COLACE [Concomitant]
     Active Substance: DOCUSATE SODIUM
     Indication: CONSTIPATION
     Dosage: SELECT IF ONGOING=NO
     Route: 065
     Dates: start: 20150108, end: 20150109
  20. BENADRYL [Concomitant]
     Active Substance: DIPHENHYDRAMINE HYDROCHLORIDE
     Indication: PREMEDICATION
     Dosage: INDICATION- ANTIHISTAMINE PRIOR TO OBINUTUZUMAB
     Route: 065
     Dates: start: 20150113, end: 20150113
  21. KYTRIL [Concomitant]
     Active Substance: GRANISETRON HYDROCHLORIDE
     Route: 065
     Dates: start: 20150126, end: 20150126
  22. NYQUIL COLD AND FLU NIGHTTIME RELIEF [Concomitant]
     Indication: OROPHARYNGEAL PAIN
     Dosage: SELECT IF ONGOING=YES
     Route: 065
     Dates: start: 20150115
  23. ZOFRAN [Concomitant]
     Active Substance: ONDANSETRON HYDROCHLORIDE
     Dosage: INDICATION - ANTIEMETIC
     Route: 065
     Dates: start: 20150105, end: 20150107
  24. SODIUM CHLORIDE. [Concomitant]
     Active Substance: SODIUM CHLORIDE
     Dosage: INDICATION: HYDRATION TO PREVENT TLS
     Route: 042
     Dates: start: 20150309, end: 20150309
  25. GDC-0199 (BCL-2 SELECTIVE INHIBITOR) [Suspect]
     Active Substance: VENETOCLAX
     Indication: NON-HODGKIN^S LYMPHOMA
     Dosage: MOST RECENT DOSE AT 200 ON 28/JAN/2015
     Route: 048
     Dates: start: 20150108
  26. PREDNISONE. [Suspect]
     Active Substance: PREDNISONE
     Indication: NON-HODGKIN^S LYMPHOMA
     Dosage: 100 , UNIT- OTHER, MOST RECENT DOSE:28/JAN/2015
     Route: 048
     Dates: start: 20150105
  27. LOVENOX [Concomitant]
     Active Substance: ENOXAPARIN SODIUM
     Indication: PROPHYLAXIS
     Dosage: INDICATION: DVT/PE PROPHYLAXIS
     Route: 065
     Dates: start: 20150129, end: 20150201
  28. BENADRYL [Concomitant]
     Active Substance: DIPHENHYDRAMINE HYDROCHLORIDE
     Dosage: INDICATION: ANTIHISTAMINE PRIOR TO OBINITUZUMAB
     Route: 065
     Dates: start: 20150309, end: 20150309
  29. ZOFRAN [Concomitant]
     Active Substance: ONDANSETRON HYDROCHLORIDE
     Route: 065
     Dates: start: 20150107, end: 20150109
  30. CYCLOPHOSPHAMIDE. [Suspect]
     Active Substance: CYCLOPHOSPHAMIDE
     Indication: NON-HODGKIN^S LYMPHOMA
     Dosage: DOSE OF LAST CYCLOPHOSPHAMIDE ADMINISTERED 1530 (UNITS NOT REPORTED) ON 26/JAN/2015
     Route: 065
     Dates: start: 20150105, end: 20150126
  31. TYLENOL [Concomitant]
     Active Substance: ACETAMINOPHEN
     Route: 065
     Dates: start: 20150421, end: 20150421
  32. NEULASTA [Concomitant]
     Active Substance: PEGFILGRASTIM
     Dosage: INDICATION: PRIMARY PROPHYLAXIS FOR NEUTROPENIA.
     Route: 065
     Dates: start: 20150127, end: 20150127
  33. GLYCOLAX [Concomitant]
     Active Substance: POLYETHYLENE GLYCOL 3350
     Dosage: AS LAXATIVE
     Route: 065
     Dates: start: 20150109, end: 20150109
  34. BENADRYL [Concomitant]
     Active Substance: DIPHENHYDRAMINE HYDROCHLORIDE
     Route: 065
     Dates: start: 20150330, end: 20150330
  35. BENADRYL [Concomitant]
     Active Substance: DIPHENHYDRAMINE HYDROCHLORIDE
     Route: 065
     Dates: start: 20150421, end: 20150421
  36. MIRALAX [Concomitant]
     Active Substance: POLYETHYLENE GLYCOL 3350
  37. RASBURICASE [Concomitant]
     Active Substance: RASBURICASE
     Dosage: TUMOR LYSIS SYNDROME PROPHYLAXIS
     Route: 065
     Dates: start: 20150105, end: 20150105
  38. DECADRON [Concomitant]
     Active Substance: DEXAMETHASONE
     Indication: INFUSION RELATED REACTION
     Route: 065
     Dates: start: 20150105, end: 20150105
  39. DECADRON [Concomitant]
     Active Substance: DEXAMETHASONE
     Dosage: SELECT IF ONGOING=NO
     Route: 065
     Dates: start: 20150120, end: 20150120
  40. DECADRON [Concomitant]
     Active Substance: DEXAMETHASONE
     Route: 065
     Dates: start: 20150126, end: 20150126
  41. TYLENOL [Concomitant]
     Active Substance: ACETAMINOPHEN
     Route: 065
     Dates: start: 20150120, end: 20150120
  42. NEULASTA [Concomitant]
     Active Substance: PEGFILGRASTIM
     Route: 065
     Dates: start: 20150331, end: 20150331
  43. BENADRYL [Concomitant]
     Active Substance: DIPHENHYDRAMINE HYDROCHLORIDE
     Indication: INFUSION RELATED REACTION
     Route: 065
     Dates: start: 20150105, end: 20150105
  44. BENADRYL [Concomitant]
     Active Substance: DIPHENHYDRAMINE HYDROCHLORIDE
     Route: 065
     Dates: start: 20150120, end: 20150120
  45. BENADRYL [Concomitant]
     Active Substance: DIPHENHYDRAMINE HYDROCHLORIDE
     Route: 065
     Dates: start: 20150217, end: 20150217
  46. KYTRIL [Concomitant]
     Active Substance: GRANISETRON HYDROCHLORIDE
     Dosage: INDICATION -ANTIEMETIC
     Route: 065
     Dates: start: 20150105, end: 20150105
  47. KYTRIL [Concomitant]
     Active Substance: GRANISETRON HYDROCHLORIDE
     Route: 065
     Dates: start: 20150120, end: 20150120
  48. SODIUM CHLORIDE. [Concomitant]
     Active Substance: SODIUM CHLORIDE
     Dosage: INDICATION: PROPHYLAXIS FOR TLS
     Route: 042
     Dates: start: 20150106, end: 20150106
  49. DOXORUBICIN [Suspect]
     Active Substance: DOXORUBICIN
     Indication: NON-HODGKIN^S LYMPHOMA
     Dosage: DOSE OF LAST DOXORUBICIN ADMINISTERED: 102 (UNITS NOT REPORTED) ON 26/JAN/2015
     Route: 065
     Dates: start: 20150105, end: 20150126
  50. DECADRON [Concomitant]
     Active Substance: DEXAMETHASONE
     Route: 065
     Dates: start: 20150217, end: 20150217
  51. NEULASTA [Concomitant]
     Active Substance: PEGFILGRASTIM
     Route: 065
     Dates: start: 20150421, end: 20150421
  52. RENAGEL [Concomitant]
     Active Substance: SEVELAMER HYDROCHLORIDE
     Indication: HYPERPHOSPHATAEMIA
     Dosage: SELECT IF ONGOING=NO
     Route: 065
     Dates: start: 20150108, end: 20150109
  53. KYTRIL [Concomitant]
     Active Substance: GRANISETRON HYDROCHLORIDE
     Dosage: INDICATION -ANTIEMETIC
     Route: 065
     Dates: start: 20150309, end: 20150309
  54. KYTRIL [Concomitant]
     Active Substance: GRANISETRON HYDROCHLORIDE
     Dosage: INDICATION -ANTIEMETIC
     Route: 065
     Dates: start: 20150330, end: 20150330
  55. OBINUTUZUMAB [Suspect]
     Active Substance: OBINUTUZUMAB
     Indication: NON-HODGKIN^S LYMPHOMA
     Dosage: DOSE OF LAST OBINUTUZUMAB ADMINISTERED 1000 MG (AS PER PROTOCOL) ON 26/JAN/2015
     Route: 065
     Dates: start: 20150105, end: 20150126
  56. COMBIVENT [Concomitant]
     Active Substance: ALBUTEROL SULFATE\IPRATROPIUM BROMIDE
     Indication: EMPHYSEMA
     Dosage: SELECT IF ONGOING=YES
     Route: 065
     Dates: start: 20150201
  57. TYLENOL [Concomitant]
     Active Substance: ACETAMINOPHEN
     Route: 065
     Dates: start: 20150113, end: 20150113
  58. TYLENOL [Concomitant]
     Active Substance: ACETAMINOPHEN
     Route: 065
     Dates: start: 20150217, end: 20150217
  59. TYLENOL [Concomitant]
     Active Substance: ACETAMINOPHEN
     Route: 065
     Dates: start: 20150330, end: 20150330
  60. KYTRIL [Concomitant]
     Active Substance: GRANISETRON HYDROCHLORIDE
     Route: 065
     Dates: start: 20150113, end: 20150113
  61. KYTRIL [Concomitant]
     Active Substance: GRANISETRON HYDROCHLORIDE
     Dosage: INDICATION -ANTIEMETIC
     Route: 065
     Dates: start: 20150421, end: 20150421
  62. SODIUM CHLORIDE. [Concomitant]
     Active Substance: SODIUM CHLORIDE
     Dosage: INDICATION: PROPHYLAXIS FOR TLS
     Route: 042
     Dates: start: 20150421, end: 20150421

REACTIONS (1)
  - Pneumonia [Recovered/Resolved]

NARRATIVE: CASE EVENT DATE: 20150128
